FAERS Safety Report 14185557 (Version 1)
Quarter: 2017Q4

REPORT INFORMATION
  Report Type: Spontaneous
  Country: US (occurrence: US)
  Receive Date: 20171112
  Receipt Date: 20171112
  Transmission Date: 20180321
  Serious: Yes (Death)
  Sender: FDA-Public Use
  Company Number: None

PATIENT
  Age: 70 Year
  Sex: Female
  Weight: 54.45 kg

DRUGS (2)
  1. ATORVASTATIN [Suspect]
     Active Substance: ATORVASTATIN
     Indication: MYOCARDIAL INFARCTION
     Route: 048
  2. ATORVASTATIN [Suspect]
     Active Substance: ATORVASTATIN
     Indication: CEREBROVASCULAR ACCIDENT PROPHYLAXIS
     Route: 048

REACTIONS (10)
  - Chest pain [None]
  - Urinary tract infection [None]
  - Weight decreased [None]
  - Glucose tolerance impaired [None]
  - Dysphagia [None]
  - Diarrhoea [None]
  - Muscle injury [None]
  - Cognitive disorder [None]
  - Muscle atrophy [None]
  - Type 2 diabetes mellitus [None]

NARRATIVE: CASE EVENT DATE: 20141009
